FAERS Safety Report 5963541-1 (Version None)
Quarter: 2008Q4

REPORT INFORMATION
  Report Type: 
  Country: None (occurrence: None)
  Receive Date: 20081124
  Receipt Date: 20081121
  Transmission Date: 20090506
  Serious: Yes (Life-Threatening, Hospitalization)
  Sender: FDA-Public Use
  Company Number: FR-WYE-G02574508

PATIENT
  Sex: Male

DRUGS (3)
  1. TYGACIL [Suspect]
     Indication: CELLULITIS
     Dosage: UNKNOWN
     Route: 042
     Dates: start: 20081101
  2. TYGACIL [Suspect]
     Indication: POST PROCEDURAL INFECTION
  3. TYGACIL [Suspect]
     Indication: ABSCESS NECK

REACTIONS (1)
  - CAROTID ANEURYSM RUPTURE [None]
